FAERS Safety Report 6336223-4 (Version None)
Quarter: 2009Q3

REPORT INFORMATION
  Report Type: 
  Country: None (occurrence: None)
  Receive Date: 20090901
  Receipt Date: 20090821
  Transmission Date: 20100115
  Serious: Yes (Hospitalization, Other)
  Sender: FDA-Public Use
  Company Number: PHHY2009JP36280

PATIENT
  Sex: Female

DRUGS (17)
  1. AMN107 AMN+CAP [Suspect]
     Indication: CHRONIC MYELOID LEUKAEMIA
     Dosage: 800 MG/DAY
     Route: 048
     Dates: start: 20090406, end: 20090511
  2. AMN107 AMN+CAP [Suspect]
     Dosage: 400 MG/DAY
     Route: 048
     Dates: start: 20090612
  3. ALLORINE [Concomitant]
     Dosage: 300 MG
     Route: 048
     Dates: start: 20090406, end: 20090526
  4. MUCOSTA [Concomitant]
     Dosage: 300 MG
     Route: 048
     Dates: start: 20090413
  5. MOBIC [Concomitant]
     Dosage: 10 MG
     Route: 048
     Dates: start: 20090413, end: 20090510
  6. MOBIC [Concomitant]
     Dosage: 10 MG
     Route: 048
     Dates: start: 20090522, end: 20090524
  7. UREPEARL [Concomitant]
     Dosage: UNK
     Route: 061
     Dates: start: 20090413, end: 20090529
  8. TAKEPRON [Concomitant]
     Dosage: 15 MG
     Route: 048
     Dates: start: 20090511, end: 20090526
  9. SPRYCEL [Concomitant]
     Dosage: 15 MG
     Route: 048
     Dates: start: 20090511, end: 20090525
  10. ITRIZOLE [Concomitant]
     Dosage: 200 MG
     Route: 048
     Dates: start: 20090518, end: 20090522
  11. LOXONIN [Concomitant]
     Dosage: 180 MG
     Route: 048
     Dates: start: 20090525, end: 20090528
  12. CEFDINIR [Concomitant]
     Dosage: 300 MG
     Route: 048
     Dates: start: 20090525, end: 20090528
  13. PYRINAZIN [Concomitant]
     Dosage: 400 MG
     Route: 048
     Dates: start: 20090531, end: 20090531
  14. ASCORBIC ACID [Concomitant]
     Dosage: UNK
     Route: 042
     Dates: start: 20090526, end: 20090601
  15. VOLTAREN [Concomitant]
     Dosage: 15 MG
     Route: 061
     Dates: start: 20090413, end: 20090529
  16. CEFOPERAZONE SODIUM/SULBACTAM SODIUM [Concomitant]
     Dosage: 2 GM
     Route: 042
     Dates: start: 20090526, end: 20090528
  17. AMINO ACIDS/CARBOHYDRATES/MINERALS/VITAMINS, [Concomitant]
     Dosage: 1000 ML
     Route: 042
     Dates: start: 20090526, end: 20090601

REACTIONS (16)
  - ABDOMINAL PAIN UPPER [None]
  - ALANINE AMINOTRANSFERASE INCREASED [None]
  - ANAEMIA [None]
  - ASPARTATE AMINOTRANSFERASE INCREASED [None]
  - BLOOD ALKALINE PHOSPHATASE INCREASED [None]
  - BLOOD LACTATE DEHYDROGENASE INCREASED [None]
  - DECREASED APPETITE [None]
  - DRY SKIN [None]
  - EOSINOPHILIA [None]
  - GAMMA-GLUTAMYLTRANSFERASE INCREASED [None]
  - PERIARTHRITIS [None]
  - PLATELET COUNT DECREASED [None]
  - PRURITUS [None]
  - PYREXIA [None]
  - RASH [None]
  - SKIN EXFOLIATION [None]
